FAERS Safety Report 7319717-4 (Version None)
Quarter: 2011Q1

REPORT INFORMATION
  Report Type: 
  Country: None (occurrence: None)
  Receive Date: 20110228
  Receipt Date: 20100819
  Transmission Date: 20110831
  Serious: No
  Sender: FDA-Public Use
  Company Number: A0876759A

PATIENT
  Age: 31 Year
  Sex: Female

DRUGS (3)
  1. LAMICTAL [Suspect]
     Dosage: 400MG PER DAY
     Route: 048
     Dates: start: 20100601
  2. LAMICTAL [Suspect]
     Indication: BIPOLAR DISORDER
     Dosage: 400MG PER DAY
     Route: 048
     Dates: start: 20050101, end: 20100601
  3. NO CONCURRENT MEDICATION [Concomitant]

REACTIONS (5)
  - HYPERCHLORHYDRIA [None]
  - PAIN IN EXTREMITY [None]
  - EATING DISORDER [None]
  - DRUG EXPOSURE DURING PREGNANCY [None]
  - MALAISE [None]
